FAERS Safety Report 9932730 (Version 1)
Quarter: 2014Q1

REPORT INFORMATION
  Report Type: Spontaneous
  Country: US (occurrence: US)
  Receive Date: 20140228
  Receipt Date: 20140228
  Transmission Date: 20141002
  Serious: No
  Sender: FDA-Public Use
  Company Number: US-GLAXOSMITHKLINE-A1028464A

PATIENT
  Sex: Female

DRUGS (3)
  1. IMITREX [Suspect]
     Indication: BINOCULAR EYE MOVEMENT DISORDER
     Route: 058
     Dates: start: 1992, end: 2005
  2. IMITREX [Suspect]
     Indication: BINOCULAR EYE MOVEMENT DISORDER
     Route: 048
     Dates: start: 2005, end: 2005
  3. CLARITIN [Concomitant]

REACTIONS (3)
  - Drug ineffective [Unknown]
  - Vertigo [Unknown]
  - Off label use [Unknown]
